FAERS Safety Report 5306753-2 (Version None)
Quarter: 2007Q2

REPORT INFORMATION
  Report Type: 
  Country: None (occurrence: None)
  Receive Date: 20070418
  Receipt Date: 20070410
  Transmission Date: 20071010
  Serious: Yes (Other)
  Sender: FDA-Public Use
  Company Number: GXKR2007DE02781

PATIENT
  Age: 68 Year
  Sex: Female
  Weight: 100 kg

DRUGS (2)
  1. IBUPROFEN [Suspect]
     Indication: INTERVERTEBRAL DISC DEGENERATION
     Dosage: 600 800 MG DAILY, ORAL
     Route: 048
     Dates: start: 20000101, end: 20020101
  2. ENAHEXAL (NGX)(ENALAPRIL MALEATE) TABLET [Suspect]
     Indication: HYPERTENSION
     Dosage: 10 MG, QD, ORAL
     Route: 048
     Dates: start: 20000101, end: 20060301

REACTIONS (6)
  - GAIT DISTURBANCE [None]
  - INJURY ASPHYXIATION [None]
  - PAIN [None]
  - RESPIRATORY DISTRESS [None]
  - SWELLING FACE [None]
  - WEIGHT INCREASED [None]
